FAERS Safety Report 13799340 (Version 1)
Quarter: 2017Q3

REPORT INFORMATION
  Report Type: Spontaneous
  Country: US (occurrence: US)
  Receive Date: 20170727
  Receipt Date: 20170727
  Transmission Date: 20171127
  Serious: Yes (Other)
  Sender: FDA-Public Use
  Company Number: US-PFIZER INC-2017319727

PATIENT
  Age: 46 Year
  Sex: Male

DRUGS (8)
  1. METHOTREXATE. [Concomitant]
     Active Substance: METHOTREXATE
     Indication: ACUTE LYMPHOCYTIC LEUKAEMIA
     Dosage: UNK UNK, CYCLIC(FIRST CYCLE AND PART A OF THE SECOND CYCLE)
  2. CYTARABINE. [Suspect]
     Active Substance: CYTARABINE
     Dosage: UNK, 2X/DAY (1 G/M2 EVERY 12 H FOR 2 DAYS, TOTAL DOSE OF CYTARABINE TO 16 G/M2 (TOTAL DOSE 36G)(2B)
  3. CYCLOPHOSPHAMIDE. [Concomitant]
     Active Substance: CYCLOPHOSPHAMIDE
     Indication: ACUTE LYMPHOCYTIC LEUKAEMIA
     Dosage: UNK UNK, CYCLIC(FIRST CYCLE AND PART A OF THE SECOND CYCLE)
  4. CYTARABINE. [Suspect]
     Active Substance: CYTARABINE
     Indication: ACUTE LYMPHOCYTIC LEUKAEMIA
     Dosage: UNK UNK, 2X/DAY(3 G/M2 EVERY 12 H)(2B)
  5. DASATINIB [Concomitant]
     Active Substance: DASATINIB
     Indication: ACUTE LYMPHOCYTIC LEUKAEMIA
     Dosage: UNK UNK, CYCLIC(FIRST CYCLE AND PART A OF THE SECOND CYCLE)
  6. DEXAMETHASONE. [Concomitant]
     Active Substance: DEXAMETHASONE
     Dosage: 4 MG, 4X/DAY(HIGH-DOSE)
  7. VINCRISTINE [Concomitant]
     Active Substance: VINCRISTINE
     Indication: ACUTE LYMPHOCYTIC LEUKAEMIA
     Dosage: UNK UNK, CYCLIC(FIRST CYCLE AND PART A OF THE SECOND CYCLE)
  8. DOXORUBICIN [Concomitant]
     Active Substance: DOXORUBICIN
     Indication: ACUTE LYMPHOCYTIC LEUKAEMIA
     Dosage: UNK UNK, CYCLIC(FIRST CYCLE AND PART A OF THE SECOND CYCLE)

REACTIONS (1)
  - Cerebellar syndrome [Recovering/Resolving]
